FAERS Safety Report 15368946 (Version 1)
Quarter: 2018Q3

REPORT INFORMATION
  Report Type: Spontaneous
  Country: IE (occurrence: IE)
  Receive Date: 20180911
  Receipt Date: 20180911
  Transmission Date: 20181010
  Serious: Yes (Other)
  Sender: FDA-Public Use
  Company Number: IE-TEVA-2018-IE-953272

PATIENT
  Age: 41 Year
  Sex: Female

DRUGS (4)
  1. ARIPIPRAZOLE. [Suspect]
     Active Substance: ARIPIPRAZOLE
     Indication: BIPOLAR DISORDER
     Route: 048
     Dates: start: 2015, end: 201803
  2. OLANZAPINE (G) [Concomitant]
     Dates: start: 201504
  3. ARIPIPRAZOLE. [Suspect]
     Active Substance: ARIPIPRAZOLE
     Route: 048
     Dates: start: 20180816
  4. SERTRALINE  (GENERIC) [Concomitant]
     Indication: DEPRESSED MOOD
     Dates: start: 2015

REACTIONS (3)
  - Limb injury [Recovered/Resolved]
  - Monoplegia [Recovered/Resolved]
  - Paraesthesia [Not Recovered/Not Resolved]

NARRATIVE: CASE EVENT DATE: 20180816
